FAERS Safety Report 23982611 (Version 1)
Quarter: 2024Q2

REPORT INFORMATION
  Report Type: Spontaneous
  Country: US (occurrence: US)
  Receive Date: 20240617
  Receipt Date: 20240617
  Transmission Date: 20240716
  Serious: No
  Sender: FDA-Public Use
  Company Number: US-PFIZER INC-PV202400076977

PATIENT

DRUGS (5)
  1. VISTARIL [Suspect]
     Active Substance: HYDROXYZINE PAMOATE
     Indication: Urticaria
  2. PEPCID [Suspect]
     Active Substance: FAMOTIDINE
     Indication: Urticaria
  3. ALLEGRA [Suspect]
     Active Substance: FEXOFENADINE HYDROCHLORIDE
     Indication: Urticaria
  4. XYZAL [Suspect]
     Active Substance: LEVOCETIRIZINE DIHYDROCHLORIDE
     Indication: Urticaria
  5. XOLAIR [Suspect]
     Active Substance: OMALIZUMAB
     Indication: Urticaria

REACTIONS (1)
  - Drug ineffective [Unknown]
